FAERS Safety Report 9050665 (Version 2)
Quarter: 2013Q3

REPORT INFORMATION
  Report Type: Spontaneous
  Country: DK (occurrence: DK)
  Receive Date: 20130205
  Receipt Date: 20130808
  Transmission Date: 20140515
  Serious: Yes (Disabling)
  Sender: FDA-Public Use
  Company Number: DK-PFIZER INC-2013039521

PATIENT
  Age: 40 Year
  Sex: Male

DRUGS (1)
  1. DEPO-MEDROL [Suspect]
     Indication: SEASONAL ALLERGY
     Dosage: UNK
     Route: 030
     Dates: start: 2003, end: 20130601

REACTIONS (3)
  - Chorioretinopathy [Recovered/Resolved with Sequelae]
  - Retinal degeneration [Not Recovered/Not Resolved]
  - Retinal detachment [Recovered/Resolved with Sequelae]
